FAERS Safety Report 20768081 (Version 1)
Quarter: 2022Q2

REPORT INFORMATION
  Report Type: Spontaneous
  Country: GB (occurrence: GB)
  Receive Date: 20220429
  Receipt Date: 20220429
  Transmission Date: 20220720
  Serious: Yes (Other)
  Sender: FDA-Public Use
  Company Number: None

PATIENT
  Age: 88 Year
  Sex: Female
  Weight: 69 kg

DRUGS (12)
  1. MIRTAZAPINE [Suspect]
     Active Substance: MIRTAZAPINE
     Dosage: AT NIGHT.
     Dates: start: 20220225
  2. DOCUSATE SODIUM [Concomitant]
     Active Substance: DOCUSATE SODIUM
     Indication: Constipation
     Dosage: 1 DOSAGE FORM, TID
     Dates: start: 20210924
  3. ISOPROPYL MYRISTATE\MINERAL OIL [Concomitant]
     Active Substance: ISOPROPYL MYRISTATE\MINERAL OIL
     Dosage: USE AS NEEDED
     Dates: start: 20210202
  4. FENBID [IBUPROFEN] [Concomitant]
     Dosage: 1 DOSAGE FORM, TID
     Dates: start: 20220324
  5. IRBESARTAN [Concomitant]
     Active Substance: IRBESARTAN
     Dosage: 1 DOSAGE FORM, QD
     Dates: start: 20210924
  6. LANSOPRAZOLE [Concomitant]
     Active Substance: LANSOPRAZOLE
     Dosage: 1 DOSAGE FORM, QD
     Dates: start: 20220106, end: 20220328
  7. OMEPRAZOLE [Concomitant]
     Active Substance: OMEPRAZOLE
     Dosage: 1 DOSAGE FORM, QD
     Dates: start: 20220328
  8. ACETAMINOPHEN [Concomitant]
     Active Substance: ACETAMINOPHEN
     Dosage: TAKE 1 OR 2 4 TIMES/DAY
     Dates: start: 20210202
  9. SENNA [Concomitant]
     Active Substance: SENNA LEAF\SENNOSIDES\SENNOSIDES A AND B
     Dosage: NOCTE
     Dates: start: 20220316
  10. SENNOSIDES [Concomitant]
     Active Substance: SENNOSIDES
     Dosage: AT NIGHT
     Dates: start: 20210202, end: 20220314
  11. SENOKOT [Concomitant]
     Active Substance: SENNOSIDES
     Dosage: AT NIGHT
     Dates: start: 20220314
  12. SODIUM BICARBONATE [Concomitant]
     Active Substance: SODIUM BICARBONATE
     Dosage: USE AS DIRECTED
     Dates: start: 20220310, end: 20220324

REACTIONS (3)
  - Peripheral swelling [Recovered/Resolved]
  - Angioedema [Recovered/Resolved]
  - Urinary retention [Recovered/Resolved]

NARRATIVE: CASE EVENT DATE: 20220420
